FAERS Safety Report 13943878 (Version 1)
Quarter: 2017Q3

REPORT INFORMATION
  Report Type: Spontaneous
  Country: JP (occurrence: JP)
  Receive Date: 20170907
  Receipt Date: 20170907
  Transmission Date: 20171128
  Serious: Yes (Hospitalization, Other)
  Sender: FDA-Public Use
  Company Number: JP-OTSUKA-2017_019197

PATIENT
  Age: 79 Year
  Sex: Male
  Weight: 73.3 kg

DRUGS (23)
  1. LASIX [Concomitant]
     Active Substance: FUROSEMIDE
     Indication: PRODUCT USED FOR UNKNOWN INDICATION
     Dosage: 1A/DAY
     Route: 065
     Dates: start: 20170807, end: 20170811
  2. LASIX [Concomitant]
     Active Substance: FUROSEMIDE
     Dosage: 2A/DAY
     Route: 065
     Dates: start: 20170804
  3. NOIDOUBLE [Concomitant]
     Active Substance: SPIRONOLACTONE
     Indication: PRODUCT USED FOR UNKNOWN INDICATION
     Dosage: 1T, DAILY AFTER BREAKFAST
     Route: 065
     Dates: start: 20170812, end: 20170816
  4. ELIQUIS [Concomitant]
     Active Substance: APIXABAN
     Indication: PRODUCT USED FOR UNKNOWN INDICATION
     Dosage: 4T/DAY
     Route: 065
     Dates: start: 20170728
  5. LASIX [Concomitant]
     Active Substance: FUROSEMIDE
     Indication: PRODUCT USED FOR UNKNOWN INDICATION
     Dosage: 3T, DAILY AFTER BREAKFAST
     Route: 065
  6. ZYTIGA [Concomitant]
     Active Substance: ABIRATERONE ACETATE
     Indication: HORMONE-REFRACTORY PROSTATE CANCER
     Dosage: 4T, DAILY AFTER WAKING UP
     Route: 065
     Dates: end: 20170801
  7. SAMSCA [Suspect]
     Active Substance: TOLVAPTAN
     Indication: CARDIAC FAILURE
     Dosage: 7.5 MG, QD (1T/DAY)
     Route: 048
     Dates: start: 20170731, end: 20170819
  8. IRBETAN [Concomitant]
     Active Substance: IRBESARTAN
     Indication: PRODUCT USED FOR UNKNOWN INDICATION
     Dosage: 1T, DAILY AFTER BREAKFAST
     Route: 065
  9. FEBURIC [Concomitant]
     Active Substance: FEBUXOSTAT
     Indication: PRODUCT USED FOR UNKNOWN INDICATION
     Dosage: 1T, DAILY AFTER BREAKFAST
     Route: 065
  10. MIYA-BM [Concomitant]
     Active Substance: CLOSTRIDIUM BUTYRICUM SPORES STRAIN M-55
     Indication: PRODUCT USED FOR UNKNOWN INDICATION
     Dosage: 6T/DAY, DAILY AFTER EVERY MEAL
     Route: 065
  11. CALONAL [Concomitant]
     Active Substance: ACETAMINOPHEN
     Indication: PRODUCT USED FOR UNKNOWN INDICATION
     Dosage: 6T/DAY, DAILY AFTER EVERY MEAL
     Route: 065
  12. LASIX [Concomitant]
     Active Substance: FUROSEMIDE
     Dosage: 1 TABLET/DAY
     Route: 065
     Dates: start: 20170816
  13. LASIX [Concomitant]
     Active Substance: FUROSEMIDE
     Dosage: 3A/DAY
     Route: 065
     Dates: start: 20170728
  14. ZYTIGA [Concomitant]
     Active Substance: ABIRATERONE ACETATE
     Indication: METASTASES TO LYMPH NODES
  15. DECADRON [Concomitant]
     Active Substance: DEXAMETHASONE
     Indication: PRODUCT USED FOR UNKNOWN INDICATION
     Dosage: 2T/DAY, DAILY AFTER BREAKFAST AND DINNER
     Route: 065
  16. PARIET [Concomitant]
     Active Substance: RABEPRAZOLE SODIUM
     Indication: PRODUCT USED FOR UNKNOWN INDICATION
     Dosage: 1T, DAILY AFTER BREAKFAST
     Route: 065
  17. TAMSULOSIN HYDROCHLORIDE. [Concomitant]
     Active Substance: TAMSULOSIN HYDROCHLORIDE
     Indication: PRODUCT USED FOR UNKNOWN INDICATION
     Dosage: 1T, DAILY AFTER BREAKFAST
     Route: 065
  18. BELSOMRA [Concomitant]
     Active Substance: SUVOREXANT
     Indication: PRODUCT USED FOR UNKNOWN INDICATION
     Dosage: 1T, DAILY AFTER DINNER
     Route: 065
  19. ELIQUIS [Concomitant]
     Active Substance: APIXABAN
     Dosage: 2T/DAY
     Route: 065
     Dates: start: 20170820
  20. CANDESARTAN. [Concomitant]
     Active Substance: CANDESARTAN
     Indication: PRODUCT USED FOR UNKNOWN INDICATION
     Dosage: 1T, DAILY
     Route: 065
     Dates: start: 20170815, end: 20170816
  21. SOLDACTONE [Concomitant]
     Active Substance: CANRENOATE POTASSIUM
     Indication: PRODUCT USED FOR UNKNOWN INDICATION
     Dosage: 1A/DAY
     Route: 065
     Dates: start: 20170728, end: 20170811
  22. AMLODIN [Concomitant]
     Active Substance: AMLODIPINE BESYLATE
     Indication: PRODUCT USED FOR UNKNOWN INDICATION
     Dosage: 1T, DAILY AFTER BREAKFAST
     Route: 065
  23. LANSOPRAZOLE. [Concomitant]
     Active Substance: LANSOPRAZOLE
     Indication: PRODUCT USED FOR UNKNOWN INDICATION
     Dosage: 1T, DAILY
     Route: 065
     Dates: start: 20170815

REACTIONS (2)
  - Renal failure [Recovered/Resolved]
  - Azotaemia [Unknown]

NARRATIVE: CASE EVENT DATE: 20170815
